FAERS Safety Report 5398640-9 (Version None)
Quarter: 2007Q3

REPORT INFORMATION
  Report Type: 
  Country: None (occurrence: None)
  Receive Date: 20070726
  Receipt Date: 20060721
  Transmission Date: 20080115
  Serious: No
  Sender: FDA-Public Use
  Company Number: US-AMGEN-KDL182730

PATIENT
  Sex: Male
  Weight: 78.1 kg

DRUGS (8)
  1. PROCRIT [Suspect]
     Indication: ANAEMIA OF MALIGNANT DISEASE
     Route: 058
     Dates: start: 20060310, end: 20060531
  2. AZT [Concomitant]
     Dates: start: 20050608
  3. GLEEVEC [Concomitant]
  4. LAMIVUDINE [Concomitant]
     Dates: start: 20050608
  5. ABACAVIR [Concomitant]
  6. KALETRA [Concomitant]
  7. METFORMIN HCL [Concomitant]
  8. ALTACE [Concomitant]

REACTIONS (2)
  - RETICULOCYTE COUNT DECREASED [None]
  - THERAPEUTIC RESPONSE DECREASED [None]
